FAERS Safety Report 4503239-X (Version None)
Quarter: 2004Q4

REPORT INFORMATION
  Report Type: 
  Country: None (occurrence: None)
  Receive Date: 20041112
  Receipt Date: 20041102
  Transmission Date: 20050328
  Serious: Yes (Hospitalization)
  Sender: FDA-Public Use
  Company Number: 2004242917CH

PATIENT
  Sex: Female

DRUGS (5)
  1. ALDACTONE [Suspect]
     Dosage: 50 MG, DAILY, ORAL
     Route: 048
     Dates: end: 20041011
  2. ALDALIX (FUROSEMIDE SPIRONOLACTONE) [Suspect]
     Dosage: 40 MG, BID, ORAL
     Route: 048
     Dates: end: 20041011
  3. KILIOS (ACETYLSALICYLIC ACID) [Suspect]
     Dosage: 100 MG, QD, ORAL
     Route: 048
  4. CORDARONE [Concomitant]
  5. RESYL [Concomitant]

REACTIONS (8)
  - ARRHYTHMIA [None]
  - BLOOD CREATININE INCREASED [None]
  - BLOOD SODIUM DECREASED [None]
  - ELECTROCARDIOGRAM ABNORMAL [None]
  - HYPERKALAEMIA [None]
  - RENAL DISORDER [None]
  - SYNCOPE [None]
  - TACHYCARDIA [None]
